FAERS Safety Report 11830658 (Version 2)
Quarter: 2015Q4

REPORT INFORMATION
  Report Type: Spontaneous
  Country: PL (occurrence: PL)
  Receive Date: 20151214
  Receipt Date: 20151224
  Transmission Date: 20160305
  Serious: Yes (Hospitalization, Other)
  Sender: FDA-Public Use
  Company Number: PL-STRIDES ARCOLAB LIMITED-2015SP002162

PATIENT

DRUGS (3)
  1. TACROLIMUS. [Suspect]
     Active Substance: TACROLIMUS
     Indication: RENAL TRANSPLANT
     Dosage: 0.1 MG/KG, BID
     Route: 065
  2. MYCOPHENOLATE MOFETIL. [Concomitant]
     Active Substance: MYCOPHENOLATE MOFETIL
     Indication: RENAL TRANSPLANT
     Dosage: 1.0 G, BID
     Route: 065
  3. GLUCOCORTICOIDS [Concomitant]
     Active Substance: UNSPECIFIED INGREDIENT
     Indication: RENAL TRANSPLANT
     Dosage: UNK
     Route: 065

REACTIONS (11)
  - Chest pain [Recovered/Resolved]
  - Hypotension [Recovered/Resolved]
  - Sinus tachycardia [Recovered/Resolved]
  - Pulmonary congestion [Recovered/Resolved]
  - Immunosuppressant drug level increased [Recovered/Resolved]
  - Renal tubular disorder [Recovered/Resolved]
  - Vasoconstriction [Recovered/Resolved]
  - Left ventricular dysfunction [Recovered/Resolved]
  - Bundle branch block left [Recovered/Resolved]
  - Stress cardiomyopathy [Recovered/Resolved]
  - Anuria [Recovered/Resolved]
